FAERS Safety Report 13587608 (Version 1)
Quarter: 2017Q2

REPORT INFORMATION
  Report Type: Spontaneous
  Country: US (occurrence: US)
  Receive Date: 20170526
  Receipt Date: 20170526
  Transmission Date: 20170830
  Serious: No
  Sender: FDA-Public Use
  Company Number: US-009507513-1705USA012252

PATIENT
  Age: 21 Year
  Sex: Female
  Weight: 147.39 kg

DRUGS (1)
  1. NEXPLANON [Suspect]
     Active Substance: ETONOGESTREL
     Dosage: 1 DF, 3 YEAR IMPLANT
     Route: 059
     Dates: start: 20170504

REACTIONS (1)
  - Device kink [Not Recovered/Not Resolved]

NARRATIVE: CASE EVENT DATE: 20170521
